FAERS Safety Report 20743134 (Version 1)
Quarter: 2022Q2

REPORT INFORMATION
  Report Type: Spontaneous
  Country: US (occurrence: US)
  Receive Date: 20220425
  Receipt Date: 20220425
  Transmission Date: 20220721
  Serious: No
  Sender: FDA-Public Use
  Company Number: US-AMGEN-USASP2022066132

PATIENT
  Sex: Female

DRUGS (3)
  1. KANJINTI [Suspect]
     Active Substance: TRASTUZUMAB-ANNS
     Indication: Product used for unknown indication
     Dosage: 792 MILLIGRAM
     Route: 065
     Dates: start: 20211116
  2. KANJINTI [Suspect]
     Active Substance: TRASTUZUMAB-ANNS
     Dosage: 932 MILLIGRAM
     Route: 065
     Dates: start: 20220118
  3. KANJINTI [Suspect]
     Active Substance: TRASTUZUMAB-ANNS
     Dosage: 932 MILLIGRAM (WASTED DOSE 2 X 420 MG VIALS)
     Route: 065
     Dates: start: 20220208

REACTIONS (1)
  - Adverse reaction [Unknown]
